FAERS Safety Report 8411641 (Version 2)
Quarter: 2013Q2

REPORT INFORMATION
  Report Type: Spontaneous
  Country: US (occurrence: None)
  Receive Date: 20111227
  Receipt Date: 20121031
  Transmission Date: 20140414
  Serious: Yes (Other)
  Sender: FDA-Public Use
  Company Number: PHEH2011US05449

PATIENT
  Age: 38 Year
  Sex: Male
  Weight: 103.9 kg

DRUGS (10)
  1. GILENYA [Suspect]
     Indication: MULTIPLE SCLEROSIS
     Dosage: 0.5 MG, DAILY, ORAL
     Route: 048
     Dates: start: 20110926
  2. AMITRIPTYLINE (AMITRIPTYLINE) [Concomitant]
  3. DESMOPRESSIN (DESMOPRESSIN) [Concomitant]
  4. VENLAFAXINE (VENLAFAXINE) [Concomitant]
  5. OMEPRAZOLE (OMEPRAZOLE) [Concomitant]
  6. VERAPAMIL (VERAPAMIL) [Concomitant]
  7. BACLOFEN (BACLOFEN) [Concomitant]
  8. KEPPRA (LEVETIRACETAM) [Concomitant]
  9. VITAMIN C (ASCORBIC ACID) [Concomitant]
  10. VITAMIN D (ERGOCALCIFEROL) [Concomitant]

REACTIONS (6)
  - TREMOR [None]
  - HYPOTENSION [None]
  - DIZZINESS [None]
  - HEADACHE [None]
  - Neck pain [None]
  - Migraine [None]
